FAERS Safety Report 9655900 (Version 3)
Quarter: 2013Q4

REPORT INFORMATION
  Report Type: Spontaneous
  Country: IT (occurrence: IT)
  Receive Date: 20131030
  Receipt Date: 20131227
  Transmission Date: 20140711
  Serious: Yes (Hospitalization)
  Sender: FDA-Public Use
  Company Number: IT-RANBAXY-2013RR-74614

PATIENT
  Age: 61 Year
  Sex: Female

DRUGS (3)
  1. SERTRALINE [Suspect]
     Indication: DEPRESSION
     Dosage: 100 MG/DAY
     Route: 048
     Dates: start: 20120101, end: 20131003
  2. TAVOR [Suspect]
     Indication: DEPRESSION
     Dosage: 2.5 MG/DAY
     Route: 048
     Dates: start: 20120101, end: 20131003
  3. TALOFEN [Suspect]
     Indication: DEPRESSION
     Dosage: 50 DROPS/DAY
     Route: 048
     Dates: start: 20120101, end: 20131003

REACTIONS (3)
  - Hypochloraemia [Recovering/Resolving]
  - Hyponatraemia [Recovering/Resolving]
  - Abnormal behaviour [Recovering/Resolving]
